FAERS Safety Report 8444361-5 (Version None)
Quarter: 2012Q2

REPORT INFORMATION
  Report Type: 
  Country: None (occurrence: None)
  Receive Date: 20120618
  Receipt Date: 20120611
  Transmission Date: 20120825
  Serious: Yes (Hospitalization, Other)
  Sender: FDA-Public Use
  Company Number: KR-PFIZER INC-2009270538

PATIENT
  Age: 58 Year
  Sex: Male
  Weight: 67 kg

DRUGS (4)
  1. BLINDED THERAPY [Suspect]
     Indication: NON-SMALL CELL LUNG CANCER
     Dosage: UNK
     Route: 030
     Dates: start: 20090630, end: 20090630
  2. GEMCITABINE [Suspect]
     Indication: CHEMOTHERAPY
     Dosage: 1810 MG PER DAY
     Route: 042
     Dates: start: 20090717, end: 20090923
  3. CISPLATIN [Suspect]
     Indication: CHEMOTHERAPY
     Dosage: 120 MG, UNK
     Route: 042
     Dates: start: 20090717, end: 20090923
  4. BEVACIZUMAB [Suspect]
     Indication: CHEMOTHERAPY
     Dosage: 525 MG PER DAY
     Route: 042
     Dates: start: 20090717, end: 20100225

REACTIONS (2)
  - ABDOMINAL PAIN LOWER [None]
  - GASTRIC ULCER [None]
